FAERS Safety Report 6417048-8 (Version None)
Quarter: 2009Q4

REPORT INFORMATION
  Report Type: 
  Country: None (occurrence: None)
  Receive Date: 20091026
  Receipt Date: 20091013
  Transmission Date: 20100525
  Serious: Yes (Hospitalization)
  Sender: FDA-Public Use
  Company Number: GXKR2009CH11352

PATIENT
  Age: 63 Year
  Sex: Female
  Weight: 78 kg

DRUGS (6)
  1. CICLOSOL (NGX) (CICLOSPORIN) UNKNOWN [Suspect]
     Indication: PSORIASIS
     Dosage: SEE IMAGE
     Route: 048
     Dates: start: 20061116, end: 20071201
  2. CICLOSOL (NGX) (CICLOSPORIN) UNKNOWN [Suspect]
     Indication: PSORIASIS
     Dosage: SEE IMAGE
     Route: 048
     Dates: end: 20071201
  3. CICLOSOL (NGX) (CICLOSPORIN) UNKNOWN [Suspect]
     Indication: PSORIASIS
     Dosage: SEE IMAGE
     Route: 048
  4. METHOTREXATE [Suspect]
     Indication: PSORIASIS
     Dosage: GRADUALLY INCREASING DOSES UPTO 20 MG/WEEK, ORAL
     Route: 048
     Dates: start: 20060801, end: 20061101
  5. ETANERCEPT (ETANERCEPT) [Suspect]
     Indication: PSORIASIS
     Dosage: 100 MG/WEEK, SUBCUTANEOUS 50 MG/WEEK FOR ABOUT 2-3 MONTHS, SUBCUTANEOUS
     Route: 058
     Dates: start: 20071101, end: 20080401
  6. ETANERCEPT (ETANERCEPT) [Suspect]
     Indication: PSORIASIS
     Dosage: 100 MG/WEEK, SUBCUTANEOUS 50 MG/WEEK FOR ABOUT 2-3 MONTHS, SUBCUTANEOUS
     Route: 058
     Dates: end: 20080401

REACTIONS (1)
  - BREAST CANCER [None]
